FAERS Safety Report 20782505 (Version 2)
Quarter: 2022Q3

REPORT INFORMATION
  Report Type: Report from Study
  Country: GB (occurrence: GB)
  Receive Date: 20220504
  Receipt Date: 20220906
  Transmission Date: 20221027
  Serious: Yes (Other)
  Sender: FDA-Public Use
  Company Number: GB-KYOWAKIRIN-2022BKK006554

PATIENT

DRUGS (1)
  1. CRYSVITA [Suspect]
     Active Substance: BUROSUMAB-TWZA
     Indication: Hereditary hypophosphataemic rickets
     Dosage: 30 MG
     Route: 058

REACTIONS (2)
  - Renal impairment [Unknown]
  - Hyperphosphataemia [Unknown]
